FAERS Safety Report 15300961 (Version 2)
Quarter: 2018Q3

REPORT INFORMATION
  Report Type: Report from Study
  Country: US (occurrence: US)
  Receive Date: 20180821
  Receipt Date: 20180919
  Transmission Date: 20181010
  Serious: Yes (Death, Other)
  Sender: FDA-Public Use
  Company Number: PHEH2018US034364

PATIENT
  Age: 66 Year
  Sex: Female

DRUGS (1)
  1. MYFORTIC [Suspect]
     Active Substance: MYCOPHENOLATE SODIUM
     Indication: PROPHYLAXIS AGAINST TRANSPLANT REJECTION
     Dosage: 180 MG, BID
     Route: 048

REACTIONS (3)
  - Respiratory failure [Unknown]
  - Non-small cell lung cancer metastatic [Fatal]
  - Pneumothorax [Unknown]

NARRATIVE: CASE EVENT DATE: 20180511
